FAERS Safety Report 18109040 (Version 17)
Quarter: 2025Q2

REPORT INFORMATION
  Report Type: Spontaneous
  Country: US (occurrence: US)
  Receive Date: 20200804
  Receipt Date: 20250612
  Transmission Date: 20250716
  Serious: No
  Sender: PFIZER
  Company Number: US-PFIZER INC-2020294518

PATIENT
  Age: 63 Year
  Sex: Female
  Weight: 98.413 kg

DRUGS (3)
  1. XALKORI [Suspect]
     Active Substance: CRIZOTINIB
     Indication: Lung carcinoma cell type unspecified stage IV
     Dosage: 250 MG, 2X/DAY
     Route: 048
     Dates: start: 201508
  2. XALKORI [Suspect]
     Active Substance: CRIZOTINIB
     Indication: Non-small cell lung cancer stage IV
     Dosage: 200 MG, 2X/DAY
     Route: 048
  3. IRON [Concomitant]
     Active Substance: IRON
     Indication: Blood iron decreased
     Dosage: UNK, 1X/DAY (65MG IRON/325MG FERROUS SULFATE)
     Route: 048
     Dates: start: 202008

REACTIONS (19)
  - Muscle tightness [Recovering/Resolving]
  - Back disorder [Recovering/Resolving]
  - Pain in extremity [Recovering/Resolving]
  - Sciatic nerve injury [Recovering/Resolving]
  - Amnesia [Recovering/Resolving]
  - Synovial cyst [Recovering/Resolving]
  - Brain fog [Unknown]
  - General physical health deterioration [Recovering/Resolving]
  - Sinus disorder [Unknown]
  - Oropharyngeal discomfort [Unknown]
  - Head discomfort [Unknown]
  - Lymphoedema [Recovering/Resolving]
  - Weight decreased [Recovering/Resolving]
  - Back pain [Unknown]
  - Muscle atrophy [Recovering/Resolving]
  - Fatigue [Unknown]
  - Oedema peripheral [Recovering/Resolving]
  - Paraesthesia [Unknown]
  - Burning sensation [Unknown]

NARRATIVE: CASE EVENT DATE: 20200101
